FAERS Safety Report 24181347 (Version 1)
Quarter: 2024Q3

REPORT INFORMATION
  Report Type: Spontaneous
  Country: US (occurrence: US)
  Receive Date: 20240807
  Receipt Date: 20240807
  Transmission Date: 20241016
  Serious: No
  Sender: CHATTEM
  Company Number: US-OPELLA-2024OHG026062

PATIENT
  Sex: Female

DRUGS (2)
  1. ALLEGRA HIVES 24HR [Suspect]
     Active Substance: FEXOFENADINE HYDROCHLORIDE
     Indication: Urticaria
     Route: 048
  2. NATURAL VITALITY CALM [MAGNESIUM CARBONATE] [Concomitant]
     Indication: Supplementation therapy

REACTIONS (2)
  - Drug interaction [Unknown]
  - No adverse event [Unknown]
